FAERS Safety Report 16438638 (Version 1)
Quarter: 2019Q2

REPORT INFORMATION
  Report Type: Spontaneous
  Country: IT (occurrence: IT)
  Receive Date: 20190617
  Receipt Date: 20190617
  Transmission Date: 20190711
  Serious: Yes (Other)
  Sender: FDA-Public Use
  Company Number: IT-ACCORD-133236

PATIENT
  Age: 88 Year
  Sex: Male

DRUGS (6)
  1. QUETIAPINE. [Suspect]
     Active Substance: QUETIAPINE
     Route: 048
     Dates: start: 20190125, end: 20190125
  2. CONGESCOR [Concomitant]
     Active Substance: BISOPROLOL
  3. TREDIMIN [Concomitant]
  4. TAREG [Concomitant]
     Active Substance: VALSARTAN
  5. MEMANTINE. [Concomitant]
     Active Substance: MEMANTINE
  6. TORVAST [Concomitant]
     Active Substance: ATORVASTATIN

REACTIONS (2)
  - Sopor [Recovering/Resolving]
  - Drug abuse [Unknown]

NARRATIVE: CASE EVENT DATE: 20190125
